FAERS Safety Report 7520279-7 (Version None)
Quarter: 2011Q2

REPORT INFORMATION
  Report Type: 
  Country: None (occurrence: None)
  Receive Date: 20110602
  Receipt Date: 20110525
  Transmission Date: 20111010
  Serious: Yes (Hospitalization)
  Sender: FDA-Public Use
  Company Number: JP-B.I. PHARMACEUTICALS,INC./RIDGEFIELD-2011-BP-14027NB

PATIENT
  Age: 81 Year
  Sex: Male
  Weight: 54 kg

DRUGS (5)
  1. DIGOXIN [Concomitant]
     Dosage: 1 PUF
     Route: 048
  2. LASIX [Concomitant]
     Dosage: 1 PUF
     Route: 048
  3. PRADAXA [Suspect]
     Indication: ATRIAL FIBRILLATION
     Dosage: 220 MG
     Route: 048
     Dates: start: 20110412, end: 20110511
  4. CANDESARTAN CILEXETIL [Concomitant]
     Dosage: 1 PUF
     Route: 048
  5. LEVOTHYROXINE SODIUM [Concomitant]
     Dosage: 1 PUF
     Route: 048

REACTIONS (4)
  - PYREXIA [None]
  - PERICARDIAL HAEMORRHAGE [None]
  - CARDIAC TAMPONADE [None]
  - ANAEMIA [None]
